FAERS Safety Report 6919778-8 (Version None)
Quarter: 2010Q3

REPORT INFORMATION
  Report Type: 
  Country: None (occurrence: None)
  Receive Date: 20100811
  Receipt Date: 20100810
  Transmission Date: 20110219
  Serious: No
  Sender: FDA-Public Use
  Company Number: US-B.I. PHARMACEUTICALS,INC./RIDGEFIELD-2010-BP-09039BP

PATIENT
  Sex: Female

DRUGS (1)
  1. CLONIDINE HCL [Suspect]
     Indication: HYPERTENSION
     Dates: start: 20090101, end: 20090401

REACTIONS (1)
  - BLOOD PRESSURE INCREASED [None]
